FAERS Safety Report 15304699 (Version 4)
Quarter: 2018Q4

REPORT INFORMATION
  Report Type: Report from Study
  Country: US (occurrence: US)
  Receive Date: 20180821
  Receipt Date: 20181206
  Transmission Date: 20190204
  Serious: Yes (Hospitalization, Other)
  Sender: FDA-Public Use
  Company Number: US-TESARO, INC.-US-2018TSO04150

PATIENT
  Age: 78 Year
  Sex: Female

DRUGS (1)
  1. ZEJULA [Suspect]
     Active Substance: NIRAPARIB
     Indication: OVARIAN CANCER
     Dosage: 100 MG, QD
     Route: 048
     Dates: start: 201807

REACTIONS (12)
  - Fatigue [Not Recovered/Not Resolved]
  - Abdominal pain upper [Recovering/Resolving]
  - Asthenia [Unknown]
  - Peripheral swelling [Recovering/Resolving]
  - Neoplasm progression [Not Recovered/Not Resolved]
  - Product dose omission [Recovered/Resolved]
  - Arthralgia [Recovering/Resolving]
  - Poor peripheral circulation [Unknown]
  - Groin pain [Recovering/Resolving]
  - Intentional underdose [Not Recovered/Not Resolved]
  - Thrombosis [Unknown]
  - Blood pressure abnormal [Recovering/Resolving]

NARRATIVE: CASE EVENT DATE: 2018
